FAERS Safety Report 13614032 (Version 2)
Quarter: 2017Q4

REPORT INFORMATION
  Report Type: Report from Study
  Country: None (occurrence: US)
  Receive Date: 20170606
  Receipt Date: 20171006
  Transmission Date: 20180320
  Serious: Yes (Hospitalization, Other)
  Sender: FDA-Public Use
  Company Number: US-ABBVIE-17K-163-1997168-00

PATIENT
  Age: 67 Year
  Sex: Male

DRUGS (4)
  1. CLOPIDOGREL [Concomitant]
     Active Substance: CLOPIDOGREL BISULFATE
     Indication: PRODUCT USED FOR UNKNOWN INDICATION
  2. HUMIRA [Suspect]
     Active Substance: ADALIMUMAB
     Indication: CROHN^S DISEASE
     Route: 058
  3. ROSUVASTATIN. [Concomitant]
     Active Substance: ROSUVASTATIN
     Indication: PRODUCT USED FOR UNKNOWN INDICATION
  4. GLIPIZIDE W/METFORMIN [Concomitant]
     Active Substance: GLIPIZIDE\METFORMIN HYDROCHLORIDE
     Indication: PRODUCT USED FOR UNKNOWN INDICATION

REACTIONS (2)
  - Coronary artery stenosis [Recovered/Resolved]
  - Chest pain [Unknown]

NARRATIVE: CASE EVENT DATE: 20170510
